FAERS Safety Report 7298770-0 (Version None)
Quarter: 2011Q1

REPORT INFORMATION
  Report Type: 
  Country: None (occurrence: None)
  Receive Date: 20110217
  Receipt Date: 20110210
  Transmission Date: 20110831
  Serious: Yes (Other)
  Sender: FDA-Public Use
  Company Number: US-ROCHE-735431

PATIENT
  Sex: Male
  Weight: 55.3 kg

DRUGS (1)
  1. ACCUTANE [Suspect]
     Route: 065
     Dates: start: 19890101, end: 19910101

REACTIONS (6)
  - DEPRESSION [None]
  - CROHN'S DISEASE [None]
  - SUICIDAL IDEATION [None]
  - MENTAL DISORDER [None]
  - GASTROINTESTINAL INJURY [None]
  - INFLAMMATORY BOWEL DISEASE [None]
